FAERS Safety Report 6120878-3 (Version None)
Quarter: 2009Q1

REPORT INFORMATION
  Report Type: 
  Country: None (occurrence: None)
  Receive Date: 20090317
  Receipt Date: 20090309
  Transmission Date: 20090719
  Serious: No
  Sender: FDA-Public Use
  Company Number: DE-ABBOTT-08P-062-0493112-00

PATIENT
  Sex: Female

DRUGS (5)
  1. HUMIRA [Suspect]
     Indication: CROHN'S DISEASE
     Route: 058
     Dates: start: 20080512, end: 20081024
  2. HUMIRA [Suspect]
     Dates: start: 20081121
  3. BUDENOFALK [Concomitant]
     Indication: DRUG USE FOR UNKNOWN INDICATION
  4. METEX [Concomitant]
     Indication: DRUG USE FOR UNKNOWN INDICATION
  5. SALOFALK [Concomitant]
     Indication: DRUG USE FOR UNKNOWN INDICATION

REACTIONS (1)
  - NASOPHARYNGITIS [None]
